FAERS Safety Report 5105288-X (Version None)
Quarter: 2006Q3

REPORT INFORMATION
  Report Type: 
  Country: None (occurrence: None)
  Receive Date: 20060907
  Receipt Date: 20060823
  Transmission Date: 20061208
  Serious: Yes (Death)
  Sender: FDA-Public Use
  Company Number: THYM-11035

PATIENT
  Age: 60 Year
  Sex: Female
  Weight: 57 kg

DRUGS (6)
  1. THYMOGLOBULINE [Suspect]
     Indication: APLASTIC ANAEMIA
     Dosage: 91.3 MG QD IV
     Route: 042
     Dates: start: 20060821, end: 20060821
  2. OSCAL [Concomitant]
  3. MULTIVITAMIN [Concomitant]
  4. RANITIDINE [Concomitant]
  5. BENADRYL [Concomitant]
  6. TYLENOL [Concomitant]

REACTIONS (5)
  - BACK PAIN [None]
  - CHILLS [None]
  - HAEMORRHAGE INTRACRANIAL [None]
  - PYREXIA [None]
  - VOMITING [None]
